FAERS Safety Report 8192351-2 (Version None)
Quarter: 2012Q1

REPORT INFORMATION
  Report Type: 
  Country: None (occurrence: None)
  Receive Date: 20120308
  Receipt Date: 20120227
  Transmission Date: 20120608
  Serious: Yes (Other)
  Sender: FDA-Public Use
  Company Number: JP-BRISTOL-MYERS SQUIBB COMPANY-16420101

PATIENT
  Age: 56 Year
  Sex: Male

DRUGS (14)
  1. ZOLPIDEM [Concomitant]
     Dates: end: 20120207
  2. POTACOL-R [Concomitant]
     Dates: end: 20120207
  3. METFORMIN HCL [Suspect]
     Indication: DIABETES MELLITUS
     Route: 048
     Dates: start: 20110604, end: 20120207
  4. METHYCOOL [Concomitant]
     Dates: end: 20120207
  5. ALLOPURINOL [Concomitant]
     Dates: end: 20120207
  6. CONIEL [Suspect]
     Route: 048
     Dates: start: 20120207
  7. ETHYL ICOSAPENTATE [Concomitant]
     Dates: end: 20120207
  8. UBIRON [Concomitant]
     Dates: end: 20120207
  9. OLMESARTAN MEDOXOMIL [Suspect]
     Dates: end: 20120207
  10. ASCORBIC ACID [Concomitant]
     Dates: end: 20120207
  11. THIAMINE HCL [Concomitant]
     Dates: end: 20120207
  12. ALLEGRA [Concomitant]
     Dates: end: 20120207
  13. DILTIAZEM HCL [Suspect]
  14. ASPIRIN [Concomitant]

REACTIONS (11)
  - HEART RATE INCREASED [None]
  - DIZZINESS [None]
  - LIVER DISORDER [None]
  - MALAISE [None]
  - GASTROENTERITIS [None]
  - HYPOPHAGIA [None]
  - DEHYDRATION [None]
  - INFLAMMATION [None]
  - BLOOD PRESSURE DECREASED [None]
  - PYREXIA [None]
  - LACTIC ACIDOSIS [None]
